FAERS Safety Report 7609445-X (Version None)
Quarter: 2011Q3

REPORT INFORMATION
  Report Type: 
  Country: None (occurrence: None)
  Receive Date: 20110714
  Receipt Date: 20110701
  Transmission Date: 20111222
  Serious: Yes (Hospitalization, Disabling, Other)
  Sender: FDA-Public Use
  Company Number: US-BAYER-2011-033697

PATIENT
  Age: 38 Year
  Sex: Female
  Weight: 107 kg

DRUGS (10)
  1. YASMIN [Suspect]
     Indication: DYSMENORRHOEA
     Dosage: UNK
     Dates: start: 20070126, end: 20070408
  2. LIPITOR [Concomitant]
     Indication: BLOOD CHOLESTEROL INCREASED
     Dosage: UNK
     Dates: start: 20050101, end: 20090101
  3. LASIX [Concomitant]
     Indication: DIURETIC THERAPY
     Dosage: UNK
     Dates: start: 20060101, end: 20080101
  4. TOPAMAX [Concomitant]
     Indication: HEADACHE
     Dosage: UNK
     Dates: start: 20070101
  5. MIDRIN [Concomitant]
     Indication: HEADACHE
     Dosage: UNK
     Dates: start: 20070101
  6. POTASSIUM [Concomitant]
  7. ZOCOR [Concomitant]
     Indication: BLOOD CHOLESTEROL INCREASED
     Dosage: UNK
     Dates: start: 20000101, end: 20070101
  8. YASMIN [Suspect]
     Indication: MENORRHAGIA
  9. ALTACE [Concomitant]
  10. NSAID'S [Concomitant]
     Dosage: UNK UNK, PRN

REACTIONS (14)
  - SYNCOPE [None]
  - TRANSIENT ISCHAEMIC ATTACK [None]
  - DISTURBANCE IN ATTENTION [None]
  - IMPATIENCE [None]
  - CEREBROVASCULAR ACCIDENT [None]
  - ASTHENIA [None]
  - CEREBRAL INFARCTION [None]
  - VIITH NERVE PARALYSIS [None]
  - AMNESIA [None]
  - APHASIA [None]
  - LIMB INJURY [None]
  - SPEECH DISORDER [None]
  - PARALYSIS [None]
  - EMOTIONAL DISORDER [None]
